FAERS Safety Report 11911928 (Version 1)
Quarter: 2016Q1

REPORT INFORMATION
  Report Type: Spontaneous
  Country: CA (occurrence: CA)
  Receive Date: 20160112
  Receipt Date: 20160112
  Transmission Date: 20160526
  Serious: Yes (Death)
  Sender: FDA-Public Use
  Company Number: CA-TEVA-624533ACC

PATIENT
  Age: 77 Year
  Sex: Male

DRUGS (13)
  1. NOVO-PREDNISONE [Concomitant]
     Active Substance: PREDNISONE
  2. SODIUM BICARBONATE. [Concomitant]
     Active Substance: SODIUM BICARBONATE
  3. ACETAMINOPHEN AND CODEINE [Suspect]
     Active Substance: ACETAMINOPHEN\CODEINE PHOSPHATE
     Indication: LUNG INFILTRATION
     Route: 065
  4. DILTIAZEM [Concomitant]
     Active Substance: DILTIAZEM
  5. ROCALTROL [Concomitant]
     Active Substance: CALCITRIOL
  6. AVELOX [Concomitant]
     Active Substance: MOXIFLOXACIN HYDROCHLORIDE
     Route: 065
  7. CODEINE [Suspect]
     Active Substance: CODEINE
     Indication: LUNG INFILTRATION
     Route: 065
  8. ACETAMINOPHEN AND CODEINE [Suspect]
     Active Substance: ACETAMINOPHEN\CODEINE PHOSPHATE
     Indication: CHEST PAIN
  9. CODEINE [Suspect]
     Active Substance: CODEINE
     Indication: CHEST PAIN
  10. CALCIUM [Concomitant]
     Active Substance: CALCIUM
  11. FOLIC ACID. [Concomitant]
     Active Substance: FOLIC ACID
  12. LOSARTAN/HCTZ [Concomitant]
     Active Substance: HYDROCHLOROTHIAZIDE\LOSARTAN
  13. PANTOPRAZOLE [Concomitant]
     Active Substance: PANTOPRAZOLE SODIUM

REACTIONS (6)
  - Accidental overdose [Fatal]
  - Pneumonia [Fatal]
  - Opiates positive [Fatal]
  - Toxicity to various agents [Fatal]
  - Medication error [Fatal]
  - Emphysema [Fatal]
